FAERS Safety Report 7290885-6 (Version None)
Quarter: 2011Q1

REPORT INFORMATION
  Report Type: 
  Country: None (occurrence: None)
  Receive Date: 20110214
  Receipt Date: 20110103
  Transmission Date: 20110831
  Serious: Yes (Other)
  Sender: FDA-Public Use
  Company Number: US-BAYER-201030579NA

PATIENT
  Age: 21 Year
  Sex: Female
  Weight: 63.492 kg

DRUGS (13)
  1. ADDERALL 10 [Concomitant]
     Dosage: UNK
     Dates: start: 20070101
  2. YASMIN [Suspect]
     Indication: PRODUCT USED FOR UNKNOWN INDICATION
     Dosage: UNK UNK, UNK
     Route: 048
     Dates: start: 20060601, end: 20071001
  3. SYNTHROID [Concomitant]
     Dosage: UNK
     Dates: start: 20040101
  4. ASPIRIN [Concomitant]
     Dosage: UNK
     Dates: start: 20070101
  5. IBUPROFEN [Concomitant]
  6. OCELLA [Suspect]
     Indication: PRODUCT USED FOR UNKNOWN INDICATION
     Route: 048
     Dates: start: 20070401
  7. ZELNORM [Concomitant]
     Dosage: UNK
     Dates: start: 20060101
  8. SINGULAIR [Concomitant]
     Dosage: UNK
     Dates: start: 20070101
  9. ADVIL LIQUI-GELS [Concomitant]
  10. YAZ [Suspect]
     Indication: PRODUCT USED FOR UNKNOWN INDICATION
     Route: 048
     Dates: start: 20070401
  11. ALEVE [Concomitant]
  12. NASACORT AQ [Concomitant]
     Dosage: UNK
     Dates: start: 20070101
  13. ALLEGRA [Concomitant]
     Dosage: UNK
     Dates: start: 20060101

REACTIONS (2)
  - DEEP VEIN THROMBOSIS [None]
  - MENTAL DISORDER [None]
